FAERS Safety Report 21256450 (Version 1)
Quarter: 2022Q3

REPORT INFORMATION
  Report Type: Spontaneous
  Country: ES (occurrence: ES)
  Receive Date: 20220826
  Receipt Date: 20220826
  Transmission Date: 20221026
  Serious: Yes (Hospitalization, Other)
  Sender: FDA-Public Use
  Company Number: ES-MLMSERVICE-20220812-3733410-1

PATIENT
  Age: 13 Year
  Sex: Male

DRUGS (11)
  1. MEROPENEM [Suspect]
     Active Substance: MEROPENEM
     Indication: Pyomyositis
     Dosage: UNK
     Route: 065
  2. CEFTRIAXONE [Suspect]
     Active Substance: CEFTRIAXONE
     Indication: Product used for unknown indication
     Dosage: UNK
     Route: 065
  3. TEICOPLANIN [Suspect]
     Active Substance: TEICOPLANIN
     Indication: Product used for unknown indication
     Dosage: UNK
     Route: 065
  4. GADOBUTROL [Suspect]
     Active Substance: GADOBUTROL
     Indication: Diagnostic procedure
     Dosage: UNK
     Route: 065
  5. CEFOTAXIME [Suspect]
     Active Substance: CEFOTAXIME SODIUM
     Indication: Pyelonephritis
     Dosage: UNK
     Route: 042
  6. METAMIZOLE [Suspect]
     Active Substance: METAMIZOLE
     Indication: Back pain
     Dosage: UNK
     Route: 065
  7. VANCOMYCIN [Suspect]
     Active Substance: VANCOMYCIN
     Indication: Pyelonephritis
     Dosage: UNK
     Route: 042
  8. CLOXACILLIN [Concomitant]
     Active Substance: CLOXACILLIN
     Indication: Pyomyositis
     Dosage: UNK
     Route: 048
  9. DEXKETOPROFEN [Concomitant]
     Active Substance: DEXKETOPROFEN
     Indication: Back pain
     Dosage: UNK
     Route: 065
  10. ACETAMINOPHEN [Concomitant]
     Active Substance: ACETAMINOPHEN
     Indication: Back pain
     Dosage: UNK
     Route: 065
  11. RIFAMPIN [Concomitant]
     Active Substance: RIFAMPIN
     Indication: Pyomyositis
     Dosage: UNK
     Route: 048

REACTIONS (3)
  - Drug reaction with eosinophilia and systemic symptoms [Recovered/Resolved]
  - Renal function test abnormal [Recovered/Resolved]
  - Liver function test abnormal [Recovered/Resolved]
